FAERS Safety Report 22594888 (Version 1)
Quarter: 2023Q2

REPORT INFORMATION
  Report Type: Report from Study
  Country: US (occurrence: US)
  Receive Date: 20230613
  Receipt Date: 20230613
  Transmission Date: 20230722
  Serious: Yes (Hospitalization, Other)
  Sender: FDA-Public Use
  Company Number: US-ABBVIE-2313906US

PATIENT
  Age: 74 Year
  Sex: Female

DRUGS (2)
  1. ARMOUR THYROID [Suspect]
     Active Substance: THYROID, PORCINE
     Indication: Product used for unknown indication
     Dosage: 15 MILLIGRAM
     Route: 048
     Dates: start: 1997
  2. ARMOUR THYROID [Suspect]
     Active Substance: THYROID, PORCINE
     Indication: Product used for unknown indication
     Dosage: 60 MILLIGRAM
     Route: 048

REACTIONS (1)
  - Hip surgery [Unknown]

NARRATIVE: CASE EVENT DATE: 20221114
